FAERS Safety Report 21848523 (Version 2)
Quarter: 2023Q2

REPORT INFORMATION
  Report Type: Spontaneous
  Country: US (occurrence: US)
  Receive Date: 20230111
  Receipt Date: 20230405
  Transmission Date: 20230721
  Serious: No
  Sender: FDA-Public Use
  Company Number: US-CHEMOCENTRYX, INC.-2022USCCXI0568

PATIENT

DRUGS (5)
  1. TAVNEOS [Suspect]
     Active Substance: AVACOPAN
     Indication: Microscopic polyangiitis
     Dosage: 30 MG, 2X/DAY WITH FOOD
     Route: 048
     Dates: start: 20221007, end: 20221130
  2. TAVNEOS [Suspect]
     Active Substance: AVACOPAN
     Dosage: 10 MG, 1X/DAY
     Route: 048
     Dates: start: 20221202, end: 2022
  3. TAVNEOS [Suspect]
     Active Substance: AVACOPAN
     Dosage: 20 MG, PER DAY
     Route: 048
     Dates: start: 2022, end: 2022
  4. TAVNEOS [Suspect]
     Active Substance: AVACOPAN
     Dosage: 30 MG, PER DAY
     Route: 048
     Dates: start: 2022
  5. TAVNEOS [Suspect]
     Active Substance: AVACOPAN
     Dosage: 20 MG, 2X/DAY
     Route: 065

REACTIONS (6)
  - Abdominal discomfort [Not Recovered/Not Resolved]
  - Malaise [Recovered/Resolved]
  - Diarrhoea [Recovered/Resolved]
  - Headache [Recovered/Resolved]
  - Abdominal pain upper [Recovered/Resolved]
  - Nausea [Not Recovered/Not Resolved]

NARRATIVE: CASE EVENT DATE: 20220101
